FAERS Safety Report 6968982-1 (Version None)
Quarter: 2010Q3

REPORT INFORMATION
  Report Type: 
  Country: None (occurrence: None)
  Receive Date: 20100903
  Receipt Date: 20100903
  Transmission Date: 20110219
  Serious: Yes (Hospitalization)
  Sender: FDA-Public Use
  Company Number: None

PATIENT
  Age: 44 Year
  Sex: Male

DRUGS (1)
  1. CEFTAZIDIME/SODIUM CHLORIDE [Suspect]
     Indication: INFECTION
     Dosage: 2 GM ONCE IV
     Route: 042
     Dates: start: 20091103, end: 20091103

REACTIONS (4)
  - INFUSION RELATED REACTION [None]
  - PRURITUS [None]
  - RASH [None]
  - URTICARIA [None]
